FAERS Safety Report 4556394-X (Version None)
Quarter: 2005Q1

REPORT INFORMATION
  Report Type: 
  Country: None (occurrence: None)
  Receive Date: 20050103
  Receipt Date: 20041022
  Transmission Date: 20050727
  Serious: Yes (Other)
  Sender: FDA-Public Use
  Company Number: 200420331BWH

PATIENT

DRUGS (1)
  1. AVELOX [Suspect]
     Dosage: INTRAVENOUS
     Route: 042

REACTIONS (1)
  - TORSADE DE POINTES [None]
